FAERS Safety Report 17353889 (Version 1)
Quarter: 2020Q1

REPORT INFORMATION
  Report Type: Spontaneous
  Country: US (occurrence: US)
  Receive Date: 20200130
  Receipt Date: 20200130
  Transmission Date: 20200409
  Serious: No
  Sender: FDA-Public Use
  Company Number: None

PATIENT
  Age: 69 Year
  Sex: Female

DRUGS (17)
  1. LEVOTHYROXINE 112 [Concomitant]
  2. NOVOLOG [Concomitant]
     Active Substance: INSULIN ASPART
  3. PREMARIN CREAM [Concomitant]
  4. CALCITRIOL 0.25 [Concomitant]
  5. CLOPIDOGREL 75 [Concomitant]
  6. VITAMIN C 500 [Concomitant]
  7. POTASSIUM 10 [Concomitant]
  8. ISOSORBIDE DINITRATE 10 [Concomitant]
  9. CIPROFLOXACIN HCL [Suspect]
     Active Substance: CIPROFLOXACIN HYDROCHLORIDE
     Indication: CYSTITIS
     Route: 048
     Dates: start: 20191220
  10. ATORVASTATIN 40 [Concomitant]
     Active Substance: ATORVASTATIN
  11. ASPIRIN 81 [Concomitant]
     Active Substance: ASPIRIN
  12. CARVEDILOL 3.125 [Concomitant]
     Active Substance: CARVEDILOL
  13. FERROUS SULFATE 325 [Concomitant]
  14. FUROSEMIDE 20 [Concomitant]
  15. METHENAMINE HIPPURATE 1 [Concomitant]
  16. HYDRALAZINE 10 [Concomitant]
  17. PAROXETINE 20 [Concomitant]

REACTIONS (1)
  - Chromaturia [None]
